FAERS Safety Report 7359732-8 (Version None)
Quarter: 2011Q1

REPORT INFORMATION
  Report Type: 
  Country: None (occurrence: None)
  Receive Date: 20110317
  Receipt Date: 20100916
  Transmission Date: 20110831
  Serious: Yes (Hospitalization, Other)
  Sender: FDA-Public Use
  Company Number: US-BAYER-201014039NA

PATIENT
  Sex: Female
  Weight: 77.098 kg

DRUGS (4)
  1. YASMIN [Suspect]
     Indication: CONTRACEPTION
     Dosage: UNK UNK, QD
     Route: 048
     Dates: start: 20030101, end: 20070101
  2. IBUPROFEN [Concomitant]
  3. ALEVE [Concomitant]
  4. YASMIN [Suspect]
     Indication: MENSTRUAL DISCOMFORT

REACTIONS (8)
  - BILIARY DYSKINESIA [None]
  - FATIGUE [None]
  - CHOLECYSTITIS CHRONIC [None]
  - CHEST PAIN [None]
  - BACK PAIN [None]
  - PAIN [None]
  - GALLBLADDER DISORDER [None]
  - NAUSEA [None]
